FAERS Safety Report 6545528-3 (Version None)
Quarter: 2010Q1

REPORT INFORMATION
  Report Type: 
  Country: None (occurrence: None)
  Receive Date: 20100119
  Receipt Date: 20100111
  Transmission Date: 20100710
  Serious: Yes (Disabling)
  Sender: FDA-Public Use
  Company Number: 2009011844

PATIENT
  Age: 59 Year
  Sex: Male
  Weight: 82.1011 kg

DRUGS (3)
  1. TREANDA [Suspect]
     Indication: CHRONIC LYMPHOCYTIC LEUKAEMIA
     Dosage: (200 MG, CYCLIC), INTRAVENOUS
     Route: 042
     Dates: start: 20090706, end: 20091008
  2. TREANDA [Suspect]
     Indication: NON-HODGKIN'S LYMPHOMA
     Dosage: (200 MG, CYCLIC), INTRAVENOUS
     Route: 042
     Dates: start: 20090706, end: 20091008
  3. RITUXIMAB (RITUXIMAB) [Concomitant]

REACTIONS (1)
  - PHLEBITIS [None]
